FAERS Safety Report 22538039 (Version 1)
Quarter: 2023Q2

REPORT INFORMATION
  Report Type: Spontaneous
  Country: US (occurrence: US)
  Receive Date: 20230608
  Receipt Date: 20230608
  Transmission Date: 20230722
  Serious: Yes (Life-Threatening, Hospitalization, Other)
  Sender: FDA-Public Use
  Company Number: US-MLMSERVICE-20230526-4309072-1

PATIENT
  Age: 12 Year
  Sex: Female

DRUGS (1)
  1. AMLODIPINE [Suspect]
     Active Substance: AMLODIPINE BESYLATE
     Indication: Product used for unknown indication
     Dosage: CUMULATIVE DOSE -300 MG
     Route: 048

REACTIONS (9)
  - Vomiting [Recovering/Resolving]
  - Abdominal pain [Recovering/Resolving]
  - Multiple organ dysfunction syndrome [Recovering/Resolving]
  - Overdose [Unknown]
  - Toxicity to various agents [Unknown]
  - Haemodynamic instability [Recovering/Resolving]
  - Hypoxia [Recovering/Resolving]
  - Hypotension [Recovering/Resolving]
  - Tachycardia [Recovering/Resolving]
